FAERS Safety Report 23435563 (Version 1)
Quarter: 2024Q1

REPORT INFORMATION
  Report Type: Report from Study
  Country: US (occurrence: US)
  Receive Date: 20240124
  Receipt Date: 20240124
  Transmission Date: 20240409
  Serious: Yes (Other)
  Sender: FDA-Public Use
  Company Number: US-HORIZON THERAPEUTICS-HZN-2023-010389

PATIENT

DRUGS (16)
  1. TEPEZZA [Suspect]
     Active Substance: TEPROTUMUMAB-TRBW
     Indication: Endocrine ophthalmopathy
     Dosage: 747.6 MG (FIRST DOSE OF 1ST ROUND OF TREATMENT)
     Route: 042
     Dates: start: 20220324
  2. TEPEZZA [Suspect]
     Active Substance: TEPROTUMUMAB-TRBW
     Dosage: 1500 MG (SECOND DOSE OF 1ST ROUND)
     Route: 042
     Dates: start: 20220414
  3. TEPEZZA [Suspect]
     Active Substance: TEPROTUMUMAB-TRBW
     Dosage: THIRD DOSE OF 1ST ROUND
     Route: 042
     Dates: start: 20220505
  4. TEPEZZA [Suspect]
     Active Substance: TEPROTUMUMAB-TRBW
     Dosage: 1500 MG (FOURTH DOSE OF 1ST ROUND)
     Route: 042
     Dates: start: 20220526
  5. TEPEZZA [Suspect]
     Active Substance: TEPROTUMUMAB-TRBW
     Dosage: 1500 MG (FIFTH DOSE OF 1ST ROUND)
     Route: 042
     Dates: start: 20220616
  6. TEPEZZA [Suspect]
     Active Substance: TEPROTUMUMAB-TRBW
     Dosage: SIXTH DOSE OF 1ST ROUND
     Route: 042
     Dates: start: 20220707
  7. TEPEZZA [Suspect]
     Active Substance: TEPROTUMUMAB-TRBW
     Dosage: 1500 MG (SEVENTH DOSE OF 1ST ROUND)
     Route: 042
     Dates: start: 20220729
  8. TEPEZZA [Suspect]
     Active Substance: TEPROTUMUMAB-TRBW
     Dosage: 1500 MG (EIGHTH DOSE OF 1ST ROUND)
     Route: 042
     Dates: start: 20220818
  9. TEPEZZA [Suspect]
     Active Substance: TEPROTUMUMAB-TRBW
     Dosage: 771.4 MG, FIRST DOSE OF 2ND TREATMENT
     Route: 042
     Dates: start: 20230508
  10. TEPEZZA [Suspect]
     Active Substance: TEPROTUMUMAB-TRBW
     Dosage: 1500 MG, SECOND DOSE OF 2ND TREATMENT
     Route: 042
     Dates: start: 20230529
  11. TEPEZZA [Suspect]
     Active Substance: TEPROTUMUMAB-TRBW
     Dosage: 1500 MG, THIRD DOSE OF 2ND TREATMENT
     Route: 042
     Dates: start: 20230619
  12. TEPEZZA [Suspect]
     Active Substance: TEPROTUMUMAB-TRBW
     Dosage: 1509.5 MG, FOURTH DOSE OF 2ND TREATMENT
     Route: 042
     Dates: start: 20230710
  13. TEPEZZA [Suspect]
     Active Substance: TEPROTUMUMAB-TRBW
     Dosage: 1457.6 MG, FIFTH DOSE OF 2ND TREATMENT
     Route: 042
     Dates: start: 20230731
  14. TEPEZZA [Suspect]
     Active Substance: TEPROTUMUMAB-TRBW
     Dosage: 1447.1 MG, SIXTH DOSE OF 2ND TREATMENT
     Route: 042
     Dates: start: 20230821
  15. TEPEZZA [Suspect]
     Active Substance: TEPROTUMUMAB-TRBW
     Dosage: 1469 MG, SEVENTH DOSE OF 2ND TREATMENT
     Route: 042
     Dates: start: 20230911
  16. TEPEZZA [Suspect]
     Active Substance: TEPROTUMUMAB-TRBW
     Dosage: 1461.9 MG, EIGHTH DOSE OF 2ND TREATMENT
     Route: 042
     Dates: start: 20231003

REACTIONS (5)
  - Myocardial infarction [Unknown]
  - Blood pressure increased [Unknown]
  - Tooth loss [Not Recovered/Not Resolved]
  - Hypoacusis [Not Recovered/Not Resolved]
  - Off label use [Unknown]

NARRATIVE: CASE EVENT DATE: 20220301
